FAERS Safety Report 4549670-8 (Version None)
Quarter: 2005Q1

REPORT INFORMATION
  Report Type: 
  Country: None (occurrence: None)
  Receive Date: 20050106
  Receipt Date: 20041224
  Transmission Date: 20050727
  Serious: Yes (Hospitalization)
  Sender: FDA-Public Use
  Company Number: J200404480

PATIENT
  Age: 89 Year
  Sex: Female

DRUGS (7)
  1. (MYSLEE) ZOLPIDEM TABLET 10 MG/5 MG [Suspect]
     Indication: INSOMNIA
     Dosage: 10 MG/5 MG
     Route: 048
     Dates: start: 20030829, end: 20031218
  2. (MYSLEE) ZOLPIDEM TABLET 10 MG/5 MG [Suspect]
     Indication: INSOMNIA
     Dosage: 10 MG/5 MG
     Route: 048
     Dates: start: 20031224, end: 20040727
  3. SIGMART (NICORANDIL) [Concomitant]
  4. CALONAL (ACETAMINOPHEN) [Concomitant]
  5. LOXONIN (LOXOPROFEN SODIUM) [Concomitant]
  6. ALESION (EPINASTINE HYDROCHLORIDE) [Concomitant]
  7. FRANDOL (ISOSORBIDE NITRATE) [Concomitant]

REACTIONS (8)
  - BLOOD PRESSURE DECREASED [None]
  - CEREBRAL INFARCTION [None]
  - DEHYDRATION [None]
  - DELIRIUM [None]
  - DEPRESSED LEVEL OF CONSCIOUSNESS [None]
  - HYPERHIDROSIS [None]
  - TRANSIENT ISCHAEMIC ATTACK [None]
  - VASODILATATION [None]
